FAERS Safety Report 4774307-2 (Version None)
Quarter: 2005Q3

REPORT INFORMATION
  Report Type: 
  Country: None (occurrence: None)
  Receive Date: 20050914
  Receipt Date: 20050305
  Transmission Date: 20060218
  Serious: Yes (Death)
  Sender: FDA-Public Use
  Company Number: 163-20785-05030140

PATIENT
  Age: 69 Year
  Sex: Female
  Weight: 74.8435 kg

DRUGS (8)
  1. THALOMID [Suspect]
     Indication: HEPATIC NEOPLASM MALIGNANT
     Dosage: 200 MG, DAILY, ORAL
     Route: 048
     Dates: start: 20040702
  2. TOPROL-XL [Concomitant]
  3. COUMADIN [Concomitant]
  4. FUROSEMIDE [Concomitant]
  5. SYNTHROID [Concomitant]
  6. PROMETHAZINE [Concomitant]
  7. SPIRONOLACTONE [Concomitant]
  8. MORPHINE [Concomitant]

REACTIONS (14)
  - ABDOMINAL DISTENSION [None]
  - ABDOMINAL PAIN [None]
  - ASCITES [None]
  - BREATH SOUNDS ABNORMAL [None]
  - CONSTIPATION [None]
  - DEATH [None]
  - DISEASE PROGRESSION [None]
  - DYSPNOEA [None]
  - HEPATIC CIRRHOSIS [None]
  - HEPATIC ENZYME INCREASED [None]
  - JAUNDICE [None]
  - LIVER FUNCTION TEST ABNORMAL [None]
  - OEDEMA PERIPHERAL [None]
  - RESPIRATORY FREMITUS [None]
